FAERS Safety Report 9208385 (Version 1)
Quarter: 2013Q2

REPORT INFORMATION
  Report Type: Report from Study
  Country: GB (occurrence: GB)
  Receive Date: 20130404
  Receipt Date: 20130404
  Transmission Date: 20140414
  Serious: Yes (Hospitalization)
  Sender: FDA-Public Use
  Company Number: GB-BIOGENIDEC-2012BI018629

PATIENT
  Age: 43 Year
  Sex: Male
  Weight: 73 kg

DRUGS (5)
  1. BG00012 [Suspect]
     Indication: MULTIPLE SCLEROSIS
     Dates: start: 20101126
  2. IBUPROFEN [Concomitant]
     Indication: ANALGESIC THERAPY
     Route: 048
     Dates: start: 201003
  3. PARACETAMOL [Concomitant]
     Indication: ANALGESIC THERAPY
     Dosage: DOSE UNIT:1
     Route: 048
     Dates: start: 201003
  4. VITAMIN D [Concomitant]
     Indication: ROUTINE HEALTH MAINTENANCE
     Route: 048
     Dates: start: 201008
  5. MULTIVITAMINS [Concomitant]
     Indication: ROUTINE HEALTH MAINTENANCE
     Route: 048
     Dates: start: 200907

REACTIONS (2)
  - Clavicle fracture [Recovered/Resolved with Sequelae]
  - Femoral neck fracture [Recovered/Resolved with Sequelae]
